FAERS Safety Report 8685474 (Version 2)
Quarter: 2013Q4

REPORT INFORMATION
  Report Type: Spontaneous
  Country: JP (occurrence: JP)
  Receive Date: 20120726
  Receipt Date: 20131105
  Transmission Date: 20140711
  Serious: Yes (Hospitalization)
  Sender: FDA-Public Use
  Company Number: JP-009507513-1207JPN008136

PATIENT
  Age: 8 Decade
  Sex: Male

DRUGS (3)
  1. TEMODAL [Suspect]
     Route: 041
     Dates: start: 20120321, end: 201205
  2. TEGRETOL [Suspect]
     Indication: EPILEPSY
     Dosage: DAILY DOSAGE UNKNOWN
     Route: 048
     Dates: start: 201203, end: 201205
  3. KEPPRA [Suspect]
     Indication: EPILEPSY
     Dosage: DAILY DOSAGE UNKNOWN
     Route: 048
     Dates: start: 201203, end: 201205

REACTIONS (1)
  - Drug eruption [Recovering/Resolving]
